FAERS Safety Report 17608681 (Version 3)
Quarter: 2020Q2

REPORT INFORMATION
  Report Type: Spontaneous
  Country: HU (occurrence: HU)
  Receive Date: 20200401
  Receipt Date: 20200423
  Transmission Date: 20200713
  Serious: Yes (Other)
  Sender: FDA-Public Use
  Company Number: HU-VELOXIS PHARMACEUTICALS-2020VELHU-000286

PATIENT
  Age: 13 Year
  Sex: Female

DRUGS (2)
  1. ENVARSUS XR [Suspect]
     Active Substance: TACROLIMUS
     Indication: SCLERODERMA
     Dosage: UNK
     Route: 065
  2. METHOTREXATE. [Suspect]
     Active Substance: METHOTREXATE
     Indication: PRODUCT USED FOR UNKNOWN INDICATION
     Dosage: UNK
     Route: 048

REACTIONS (7)
  - Pigmentation disorder [Unknown]
  - Disease progression [Unknown]
  - Product use issue [Unknown]
  - Scleroderma [Unknown]
  - Product use in unapproved indication [Unknown]
  - Skin hypertrophy [Unknown]
  - Raynaud^s phenomenon [Unknown]
